FAERS Safety Report 24356990 (Version 1)
Quarter: 2024Q3

REPORT INFORMATION
  Report Type: Other
  Country: ES (occurrence: ES)
  Receive Date: 20240924
  Receipt Date: 20240924
  Transmission Date: 20241017
  Serious: Yes (Disabling, Other)
  Sender: MACLEODS
  Company Number: ES-MACLEODS PHARMA-MAC2019020414

PATIENT

DRUGS (5)
  1. ESCITALOPRAM [Suspect]
     Active Substance: ESCITALOPRAM OXALATE
     Indication: Depression
     Dosage: 10 MILLIGRAM, QD, 10 MG, 1X/DAY
     Route: 065
  2. SERTRALINE HYDROCHLORIDE [Suspect]
     Active Substance: SERTRALINE HYDROCHLORIDE
     Indication: Depression
     Dosage: STARTED TREATMENT WITH 50 MG/DAY AND MOVING TO 100 MG/DAY
     Route: 048
  3. SERTRALINE HYDROCHLORIDE [Suspect]
     Active Substance: SERTRALINE HYDROCHLORIDE
     Dosage: 50 MILLIGRAM, QD(STARTED TREATMENT WITH 50 MG/DAY AND MOVING TO 100 MG/DAY FROM THE SECOND WEEK OF)
     Route: 048
  4. SERTRALINE HYDROCHLORIDE [Suspect]
     Active Substance: SERTRALINE HYDROCHLORIDE
     Dosage: 50 MILLIGRAM, QD(STARTED TREATMENT WITH 50 MG/DAY AND MOVING TO 100 MG/DAY FROM THE SECOND WEEK OF)
     Route: 048
  5. ENALAPRIL [Concomitant]
     Active Substance: ENALAPRIL
     Indication: Hypertension
     Dosage: 20 MILLIGRAM, QD, 20 MG, 1X/DAY, 4 YEARS
     Route: 048

REACTIONS (1)
  - Loss of libido [Not Recovered/Not Resolved]
